FAERS Safety Report 6217018-9 (Version None)
Quarter: 2009Q2

REPORT INFORMATION
  Report Type: 
  Country: None (occurrence: None)
  Receive Date: 20090604
  Receipt Date: 20090527
  Transmission Date: 20091009
  Serious: Yes (Hospitalization)
  Sender: FDA-Public Use
  Company Number: 2009JP002721

PATIENT
  Age: 47 Year
  Sex: Female
  Weight: 53 kg

DRUGS (11)
  1. PROGRAF [Suspect]
     Indication: SYSTEMIC LUPUS ERYTHEMATOSUS
     Dosage: 3 MG UID/QD UNKNOWN
     Dates: start: 20060301, end: 20081110
  2. ISCOTIN (ISONIAZID) TABLET [Suspect]
     Dosage: 100 MG UID/QD, ORAL
     Route: 048
     Dates: start: 20080926, end: 20081024
  3. MESTINON [Concomitant]
  4. PREDNISOLONE [Concomitant]
  5. BAYASPIRIN TABLET [Concomitant]
  6. FOSAMAC (ALENDRONATE SODIUM) [Concomitant]
  7. ALFAROL (ALFACALCIDOL) CAPSULE [Concomitant]
  8. CALCIUM LACTATE (CALCIUM LACTATE) [Concomitant]
  9. PARIET (RABEPRAZOLE SODIUM) TABLET [Concomitant]
  10. GASTROM (ECABET MONOSODIUM) GRANULE [Concomitant]
  11. LOXONIN (LOXOPROFEN SODIUM) TABLET [Concomitant]

REACTIONS (7)
  - APLASIA PURE RED CELL [None]
  - BLOOD IRON INCREASED [None]
  - EXPOSURE TO COMMUNICABLE DISEASE [None]
  - FATIGUE [None]
  - IRON BINDING CAPACITY UNSATURATED DECREASED [None]
  - PALPITATIONS [None]
  - SERUM FERRITIN INCREASED [None]
